FAERS Safety Report 5769515-8 (Version None)
Quarter: 2008Q2

REPORT INFORMATION
  Report Type: 
  Country: None (occurrence: None)
  Receive Date: 20080612
  Receipt Date: 20080411
  Transmission Date: 20081010
  Serious: Yes (Other)
  Sender: FDA-Public Use
  Company Number: US-ABBOTT-08P-163-0444987-00

PATIENT
  Sex: Male

DRUGS (2)
  1. HUMIRA [Suspect]
     Indication: PSORIATIC ARTHROPATHY
     Route: 058
     Dates: end: 20080401
  2. HUMIRA [Suspect]
     Indication: PSORIASIS

REACTIONS (4)
  - ANAPHYLACTIC REACTION [None]
  - GENERALISED ERYTHEMA [None]
  - PHARYNGEAL OEDEMA [None]
  - URTICARIA [None]
